FAERS Safety Report 24316615 (Version 1)
Quarter: 2024Q3

REPORT INFORMATION
  Report Type: Spontaneous
  Country: US (occurrence: None)
  Receive Date: 20240912
  Receipt Date: 20240912
  Transmission Date: 20241017
  Serious: Yes (Hospitalization, Disabling)
  Sender: Public
  Company Number: None

PATIENT
  Age: 43 Year
  Sex: Female
  Weight: 54 kg

DRUGS (2)
  1. BOTOX [Suspect]
     Active Substance: ONABOTULINUMTOXINA
     Indication: Concussion
     Dates: start: 20240814, end: 20240814
  2. HERBALS\TURMERIC [Concomitant]
     Active Substance: HERBALS\TURMERIC

REACTIONS (6)
  - Primary stabbing headache [None]
  - Vertigo [None]
  - Dizziness [None]
  - Cognitive disorder [None]
  - Memory impairment [None]
  - Bedridden [None]

NARRATIVE: CASE EVENT DATE: 20240814
